FAERS Safety Report 4709964-X (Version None)
Quarter: 2005Q3

REPORT INFORMATION
  Report Type: 
  Country: None (occurrence: None)
  Receive Date: 20050707
  Receipt Date: 20050628
  Transmission Date: 20060218
  Serious: Yes (Hospitalization)
  Sender: FDA-Public Use
  Company Number: CIP05001544

PATIENT
  Age: 74 Year
  Sex: Female

DRUGS (9)
  1. ACTONEL [Suspect]
     Indication: OSTEOPOROSIS
     Dosage: 35 MG ONCE WEEKLY ORAL
     Route: 048
     Dates: start: 20040101, end: 20050301
  2. LOPRESSOR [Concomitant]
  3. SYNTHROID [Concomitant]
  4. ATARAX /CAN/(HYDORXYZINE HYDROCHLORIDE) [Concomitant]
  5. ASPIRIN [Concomitant]
  6. XANAX [Concomitant]
  7. ZOCOR [Concomitant]
  8. DIFLUCAN [Concomitant]
  9. HALCION [Concomitant]

REACTIONS (9)
  - ATRIAL FIBRILLATION [None]
  - BLOOD PRESSURE INCREASED [None]
  - CONVULSION [None]
  - ELECTROLYTE IMBALANCE [None]
  - FALL [None]
  - PELVIC FRACTURE [None]
  - RIB FRACTURE [None]
  - TOOTH FRACTURE [None]
  - WEIGHT DECREASED [None]
